FAERS Safety Report 8206910-1 (Version None)
Quarter: 2012Q1

REPORT INFORMATION
  Report Type: 
  Country: None (occurrence: None)
  Receive Date: 20120314
  Receipt Date: 20120305
  Transmission Date: 20120608
  Serious: Yes (Hospitalization)
  Sender: FDA-Public Use
  Company Number: JP-JNJFOC-20110906592

PATIENT
  Sex: Female
  Weight: 46 kg

DRUGS (22)
  1. REMICADE [Suspect]
     Indication: PSORIASIS
     Route: 042
     Dates: start: 20101116
  2. REMICADE [Suspect]
     Route: 042
     Dates: start: 20110808
  3. REMICADE [Suspect]
     Route: 042
     Dates: start: 20110222
  4. ZITHROMAX [Concomitant]
     Route: 048
     Dates: start: 20110822
  5. REMICADE [Suspect]
     Route: 042
     Dates: start: 20101201
  6. REMICADE [Suspect]
     Route: 042
     Dates: start: 20110419
  7. REMICADE [Suspect]
     Route: 042
     Dates: start: 20101201
  8. ETHAMBUTOL HYDROCHLORIDE [Suspect]
     Indication: TUBERCULOSIS
     Route: 048
     Dates: start: 20111027
  9. ETHAMBUTOL HYDROCHLORIDE [Suspect]
     Route: 048
     Dates: start: 20110909, end: 20111026
  10. REMICADE [Suspect]
     Indication: PSORIATIC ARTHROPATHY
     Route: 042
     Dates: start: 20110808
  11. REMICADE [Suspect]
     Route: 042
     Dates: start: 20110614
  12. REMICADE [Suspect]
     Route: 042
     Dates: start: 20110222
  13. NEOISCOTIN [Suspect]
     Indication: TUBERCULOSIS
     Route: 048
     Dates: start: 20110909
  14. NEOISCOTIN [Suspect]
     Route: 048
     Dates: start: 20101025, end: 20110517
  15. REMICADE [Suspect]
     Route: 042
     Dates: start: 20110614
  16. REMICADE [Suspect]
     Route: 042
     Dates: start: 20110419
  17. REMICADE [Suspect]
     Route: 042
     Dates: start: 20101228
  18. REMICADE [Suspect]
     Route: 042
     Dates: start: 20101116
  19. REMICADE [Suspect]
     Route: 042
     Dates: start: 20101228
  20. RIFADIN [Suspect]
     Indication: TUBERCULOSIS
     Route: 048
     Dates: start: 20110909
  21. PYRAZINAMIDE [Suspect]
     Indication: TUBERCULOSIS
     Route: 048
     Dates: start: 20110909, end: 20111026
  22. VOLTAREN [Concomitant]
     Route: 048
     Dates: start: 20110822

REACTIONS (3)
  - PERITONEAL TUBERCULOSIS [None]
  - HEPATIC FUNCTION ABNORMAL [None]
  - ASCITES [None]
